FAERS Safety Report 5123060-1 (Version None)
Quarter: 2006Q4

REPORT INFORMATION
  Report Type: 
  Country: None (occurrence: None)
  Receive Date: 20061005
  Receipt Date: 20060921
  Transmission Date: 20070319
  Serious: Yes (Hospitalization, Other)
  Sender: FDA-Public Use
  Company Number: US200604001538

PATIENT
  Age: 33 Year
  Sex: Male
  Weight: 62.6 kg

DRUGS (1)
  1. ZYPREXA [Suspect]
     Indication: BIPOLAR DISORDER
     Dosage: 2.5 MG
     Dates: start: 20020101, end: 20030101

REACTIONS (14)
  - ABDOMINAL DISTENSION [None]
  - BLOOD TRIGLYCERIDES INCREASED [None]
  - CATHETER SITE PAIN [None]
  - DIABETES MELLITUS [None]
  - DIABETIC KETOACIDOSIS [None]
  - FLUID RETENTION [None]
  - GLUCOSE TOLERANCE IMPAIRED [None]
  - HYPERGLYCAEMIC HYPEROSMOLAR NONKETOTIC SYNDROME [None]
  - HYPERINSULINISM [None]
  - HYPOGLYCAEMIA [None]
  - METABOLIC DISORDER [None]
  - OEDEMA PERIPHERAL [None]
  - SWELLING [None]
  - WEIGHT DECREASED [None]
